FAERS Safety Report 9701520 (Version 1)
Quarter: 2013Q4

REPORT INFORMATION
  Report Type: Spontaneous
  Country: US (occurrence: None)
  Receive Date: 20131120
  Receipt Date: 20131120
  Transmission Date: 20140711
  Serious: No
  Sender: FDA-Public Use
  Company Number: None

PATIENT
  Age: 41 Year
  Sex: Female
  Weight: 108.86 kg

DRUGS (1)
  1. LEVOFLOXACIN [Suspect]
     Indication: SINUSITIS
     Dosage: ONE TABLET ONCE DAILY TAKEN BY MOUTH
     Route: 048
     Dates: start: 20131115, end: 20131117

REACTIONS (7)
  - Dizziness [None]
  - Insomnia [None]
  - Hypoaesthesia [None]
  - Paraesthesia [None]
  - Hypoaesthesia [None]
  - Poor quality sleep [None]
  - Paraesthesia [None]
